FAERS Safety Report 6526205-1 (Version None)
Quarter: 2009Q4

REPORT INFORMATION
  Report Type: 
  Country: None (occurrence: None)
  Receive Date: 20091228
  Receipt Date: 20091210
  Transmission Date: 20100525
  Serious: Yes (Death)
  Sender: FDA-Public Use
  Company Number: RENA-1000587

PATIENT
  Age: 84 Year
  Sex: Male

DRUGS (1)
  1. RENVELA [Suspect]
     Indication: HYPERPHOSPHATAEMIA
     Dosage: 0.8, TID, ORAL
     Route: 048
     Dates: start: 20090527, end: 20090818

REACTIONS (2)
  - CARDIAC ARREST [None]
  - REFUSAL OF TREATMENT BY PATIENT [None]
